FAERS Safety Report 13659936 (Version 1)
Quarter: 2017Q2

REPORT INFORMATION
  Report Type: Spontaneous
  Country: US (occurrence: US)
  Receive Date: 20170616
  Receipt Date: 20170616
  Transmission Date: 20170830
  Serious: No
  Sender: FDA-Public Use
  Company Number: US-ALLERGAN-1715867US

PATIENT
  Age: 20 Year
  Sex: Female

DRUGS (1)
  1. LILETTA [Suspect]
     Active Substance: LEVONORGESTREL
     Indication: CONTRACEPTION
     Dosage: 52 MG
     Route: 015
     Dates: start: 20170228

REACTIONS (7)
  - Menstrual discomfort [Unknown]
  - Vision blurred [Unknown]
  - Paraesthesia [Recovering/Resolving]
  - Vaginal haemorrhage [Unknown]
  - Menstruation irregular [Unknown]
  - Optic neuritis [Unknown]
  - Dysmenorrhoea [Unknown]

NARRATIVE: CASE EVENT DATE: 201704
